FAERS Safety Report 8888482 (Version 2)
Quarter: 2012Q4

REPORT INFORMATION
  Report Type: Report from Study
  Country: US (occurrence: US)
  Receive Date: 20121106
  Receipt Date: 20121130
  Transmission Date: 20130627
  Serious: Yes (Hospitalization, Other)
  Sender: FDA-Public Use
  Company Number: US-BAXTER-2012BAX021994

PATIENT
  Age: 9 Year
  Sex: Female

DRUGS (8)
  1. CYCLOPHOSPHAMIDE FOR INJECTION, USP [Suspect]
     Indication: DRUG USE FOR UNKNOWN INDICATION
     Route: 065
     Dates: start: 20120904, end: 20120904
  2. DASATINIB [Suspect]
     Indication: ACUTE LYMPHOCYTIC LEUKAEMIA
     Route: 048
     Dates: start: 20120627, end: 20120724
  3. DASATINIB [Suspect]
     Route: 048
     Dates: start: 20120725, end: 20120813
  4. DASATINIB [Suspect]
     Route: 048
     Dates: start: 20120815
  5. DASATINIB [Suspect]
     Route: 048
     Dates: end: 20121005
  6. DASATINIB [Suspect]
     Route: 048
     Dates: start: 20121007
  7. CYTARABINE [Suspect]
     Indication: DRUG USE FOR UNKNOWN INDICATION
     Dosage: 1840 (units not reported)
     Route: 042
     Dates: start: 20120928, end: 20120929
  8. METRONIDAZOLE [Concomitant]
     Indication: CLOSTRIDIUM DIFFICILE INFECTION
     Route: 048
     Dates: start: 20120914

REACTIONS (4)
  - Febrile neutropenia [Recovered/Resolved]
  - Sepsis [Recovered/Resolved]
  - Sepsis [Recovered/Resolved]
  - Device related infection [Recovered/Resolved]
